FAERS Safety Report 7218918-3 (Version None)
Quarter: 2011Q1

REPORT INFORMATION
  Report Type: 
  Country: None (occurrence: None)
  Receive Date: 20110110
  Receipt Date: 20101229
  Transmission Date: 20110831
  Serious: Yes (Life-Threatening)
  Sender: FDA-Public Use
  Company Number: CA-BAYER-2010-008623

PATIENT
  Age: 86 Year
  Weight: 71.5 kg

DRUGS (11)
  1. PERINDOPRIL ERBUMINE [Concomitant]
  2. FUROSEMIDE [Concomitant]
  3. METOPROLOL [Concomitant]
  4. COUMADIN [Concomitant]
  5. SYNTHROID [Concomitant]
  6. ASPIRIN [Concomitant]
  7. IRON SULFATETHIAMIN COMPOUND TAB [Concomitant]
  8. NEXIUM [Concomitant]
  9. RISPERDAL [Concomitant]
  10. AVELOX [Suspect]
     Dosage: 400 MG, QD
     Route: 048
  11. DIGOXIN [Concomitant]

REACTIONS (1)
  - HYPOGLYCAEMIA [None]
